FAERS Safety Report 9575549 (Version 1)
Quarter: 2013Q4

REPORT INFORMATION
  Report Type: Spontaneous
  Country: US (occurrence: US)
  Receive Date: 20131001
  Receipt Date: 20131001
  Transmission Date: 20140711
  Serious: No
  Sender: FDA-Public Use
  Company Number: US-AMGEN-USASP2012083760

PATIENT
  Sex: Male
  Weight: 97.51 kg

DRUGS (12)
  1. ENBREL [Suspect]
     Indication: RHEUMATOID ARTHRITIS
     Dosage: UNK
  2. XANAX [Concomitant]
  3. SULFADIAZINE [Concomitant]
  4. PRILOSEC                           /00661201/ [Concomitant]
  5. OXYCONTIN [Concomitant]
  6. ARAVA [Concomitant]
  7. DIOVAN [Concomitant]
  8. DOXAZOSIN [Concomitant]
  9. LEVOTHYROXIN [Concomitant]
  10. METOPROLOL [Concomitant]
  11. NORVASC [Concomitant]
  12. VALSARTAN HCTZ [Concomitant]
     Dosage: UNK

REACTIONS (1)
  - Drug ineffective [Unknown]
